FAERS Safety Report 4630086-0 (Version None)
Quarter: 2005Q2

REPORT INFORMATION
  Report Type: 
  Country: None (occurrence: None)
  Receive Date: 20050406
  Receipt Date: 20050329
  Transmission Date: 20051028
  Serious: Yes (Life-Threatening, Other)
  Sender: FDA-Public Use
  Company Number: HQWYE539230MAR05

PATIENT
  Age: 71 Year
  Sex: Male

DRUGS (2)
  1. AMIODARONE HCL [Suspect]
     Dosage: 150 MG 1X PER 1 DAY
     Route: 048
  2. WARFARIN SODIUM [Suspect]
     Dosage: 1.5 MG 1X PER 1 DAY
     Route: 048

REACTIONS (3)
  - DRUG INTERACTION [None]
  - IRRITABILITY [None]
  - SUBDURAL HAEMATOMA [None]
